FAERS Safety Report 7364908-X (Version None)
Quarter: 2011Q1

REPORT INFORMATION
  Report Type: 
  Country: None (occurrence: None)
  Receive Date: 20110316
  Receipt Date: 20110316
  Transmission Date: 20110831
  Serious: No
  Sender: FDA-Public Use
  Company Number: None

PATIENT
  Age: 68 Year
  Sex: Male
  Weight: 114.8 kg

DRUGS (4)
  1. GEMFIBROZIL [Suspect]
     Indication: HYPERLIPIDAEMIA
     Dosage: 600 MG BID PO
     Route: 048
     Dates: start: 20101102
  2. PREGABALIN [Suspect]
     Indication: PAIN
     Dosage: 50 MG TID PO
     Route: 048
     Dates: start: 20101129, end: 20101207
  3. PREGABALIN [Suspect]
     Indication: NEURALGIA
     Dosage: 50 MG TID PO
     Route: 048
     Dates: start: 20101129, end: 20101207
  4. PREGABALIN [Suspect]
     Indication: DIABETES MELLITUS
     Dosage: 50 MG TID PO
     Route: 048
     Dates: start: 20101129, end: 20101207

REACTIONS (4)
  - BLOOD CREATINE PHOSPHOKINASE INCREASED [None]
  - NIGHTMARE [None]
  - MYALGIA [None]
  - HEPATIC ENZYME INCREASED [None]
